FAERS Safety Report 7427299-1 (Version None)
Quarter: 2011Q2

REPORT INFORMATION
  Report Type: 
  Country: None (occurrence: None)
  Receive Date: 20110420
  Receipt Date: 20110416
  Transmission Date: 20111010
  Serious: No
  Sender: FDA-Public Use
  Company Number: US-PFIZER INC-2011083676

PATIENT
  Sex: Female
  Weight: 77.098 kg

DRUGS (2)
  1. IRON [Concomitant]
     Indication: ANAEMIA
     Dosage: UNK
     Route: 048
  2. DEPO-PROVERA [Suspect]
     Indication: CONTRACEPTION
     Dosage: EVERY 3 MONTHS
     Dates: start: 20110126

REACTIONS (2)
  - AMENORRHOEA [None]
  - MENORRHAGIA [None]
